FAERS Safety Report 8163583-4 (Version None)
Quarter: 2012Q1

REPORT INFORMATION
  Report Type: 
  Country: None (occurrence: None)
  Receive Date: 20120224
  Receipt Date: 20120222
  Transmission Date: 20120608
  Serious: Yes (Life-Threatening, Hospitalization, Other)
  Sender: FDA-Public Use
  Company Number: CA-B.I. PHARMACEUTICALS,INC./RIDGEFIELD-2012-CN-00394CN

PATIENT
  Age: 83 Year
  Sex: Female
  Weight: 59 kg

DRUGS (11)
  1. ALTACE HCT [Concomitant]
     Route: 065
  2. NOVO-GESIC [Concomitant]
     Route: 065
  3. MYLAN-PANTOPRAZOLE [Concomitant]
     Route: 065
  4. TOPICORT [Concomitant]
     Route: 065
  5. PRADAXA [Suspect]
     Dosage: 220 MG
     Route: 048
  6. OXAZEPAM [Concomitant]
     Route: 065
  7. CALCIA [Concomitant]
     Route: 065
  8. FLOVENT [Concomitant]
     Route: 065
  9. ACTONEL [Concomitant]
     Route: 065
  10. TOLOXIN [Concomitant]
     Route: 065
  11. DOMPERIDONE [Concomitant]
     Route: 065

REACTIONS (3)
  - ACUTE CORONARY SYNDROME [None]
  - CORONARY ARTERIAL STENT INSERTION [None]
  - CORONARY ANGIOPLASTY [None]
